FAERS Safety Report 19224761 (Version 3)
Quarter: 2022Q3

REPORT INFORMATION
  Report Type: Spontaneous
  Country: SG (occurrence: SG)
  Receive Date: 20210506
  Receipt Date: 20220827
  Transmission Date: 20221027
  Serious: Yes (Death, Hospitalization, Other)
  Sender: FDA-Public Use
  Company Number: SG-AMGEN-SGPSP2021065223

PATIENT
  Age: 64 Year
  Sex: Male

DRUGS (1)
  1. XGEVA [Suspect]
     Active Substance: DENOSUMAB
     Indication: Prophylaxis
     Dosage: 120 MILLIGRAM, Q3MO
     Route: 058

REACTIONS (13)
  - Blood parathyroid hormone increased [Unknown]
  - Hypocalcaemia [Recovering/Resolving]
  - Blood albumin decreased [Unknown]
  - Vitamin D deficiency [Unknown]
  - Hypervolaemia [Unknown]
  - General physical health deterioration [Unknown]
  - Tachycardia [Unknown]
  - Hypomagnesaemia [Unknown]
  - Pneumonia [Unknown]
  - Anaemia [Unknown]
  - Hypophosphataemia [Unknown]
  - Metastatic carcinoma of the bladder [Fatal]
  - Off label use [Unknown]
